FAERS Safety Report 12577489 (Version 1)
Quarter: 2016Q3

REPORT INFORMATION
  Report Type: Spontaneous
  Country: US (occurrence: US)
  Receive Date: 20160720
  Receipt Date: 20160720
  Transmission Date: 20161109
  Serious: Yes (Hospitalization)
  Sender: FDA-Public Use
  Company Number: US-BAUSCH-BL-2016-017224

PATIENT
  Age: 17 Year
  Sex: Male

DRUGS (2)
  1. WELLBUTRIN XL [Suspect]
     Active Substance: BUPROPION HYDROCHLORIDE
     Indication: ATTENTION DEFICIT/HYPERACTIVITY DISORDER
     Route: 065
  2. WELLBUTRIN XL [Suspect]
     Active Substance: BUPROPION HYDROCHLORIDE
     Indication: MAJOR DEPRESSION
     Route: 065

REACTIONS (6)
  - Generalised tonic-clonic seizure [Recovered/Resolved]
  - Abdominal discomfort [Recovered/Resolved]
  - Depression [Recovered/Resolved]
  - Hallucination, visual [Recovered/Resolved]
  - Overdose [Unknown]
  - Hallucination, tactile [Recovered/Resolved]
